FAERS Safety Report 24378368 (Version 1)
Quarter: 2024Q3

REPORT INFORMATION
  Report Type: Report from Study
  Country: ES (occurrence: ES)
  Receive Date: 20240930
  Receipt Date: 20240930
  Transmission Date: 20241016
  Serious: Yes (Life-Threatening, Hospitalization)
  Sender: PFIZER
  Company Number: None

PATIENT
  Age: 56 Year
  Sex: Female

DRUGS (12)
  1. DOXORUBICIN HYDROCHLORIDE [Suspect]
     Active Substance: DOXORUBICIN HYDROCHLORIDE
     Dosage: 50-75  MG/M2
     Route: 042
     Dates: start: 20231120
  2. CISPLATIN [Suspect]
     Active Substance: CISPLATIN
     Dosage: 75 MG/M2
     Route: 042
     Dates: start: 20231120
  3. CYCLOPHOSPHAMIDE [Suspect]
     Active Substance: CYCLOPHOSPHAMIDE
     Indication: Salivary gland neoplasm
     Dosage: 15 MG/KG
     Route: 042
     Dates: start: 20231120
  4. DEXAMETHASONE [Concomitant]
     Active Substance: DEXAMETHASONE
     Dosage: 1 TABLET/24H
     Route: 048
  5. ALPRAZOLAM [Concomitant]
     Active Substance: ALPRAZOLAM
     Dosage: AS NEEDED
     Route: 048
  6. MORPHINE [Concomitant]
     Active Substance: MORPHINE
     Dosage: 1 DF, 2X/DAY (1 TABLET/12H)
     Route: 048
  7. DEFLAZACORT [Concomitant]
     Active Substance: DEFLAZACORT
     Dosage: 1 DF, 1X/DAY (1 TABLET / 24H)
     Route: 048
  8. NETILMICIN [Concomitant]
     Active Substance: NETILMICIN
     Dosage: 2 DROPS/24H (OPHTHALMIC ROUTE)
     Route: 047
  9. MONTELUKAST [Concomitant]
     Active Substance: MONTELUKAST SODIUM
     Dosage: 1 TABLET/ 24H
     Route: 048
  10. FLUOROMETHOLONE [Concomitant]
     Active Substance: FLUOROMETHOLONE
     Dosage: 2 DROPS/24H
     Route: 047
  11. MORPHINE [Concomitant]
     Active Substance: MORPHINE
     Dosage: 1 DF, 2X/DAY (1 TABLET/12H)
     Route: 048
  12. KETAZOLAM [Concomitant]
     Active Substance: KETAZOLAM
     Dosage: 1 DF, 1X/DAY (1 CAPSULE/24H)
     Route: 048

REACTIONS (1)
  - Agranulocytosis [Recovered/Resolved]

NARRATIVE: CASE EVENT DATE: 20231129
